FAERS Safety Report 4337200-5 (Version None)
Quarter: 2004Q2

REPORT INFORMATION
  Report Type: 
  Country: None (occurrence: None)
  Receive Date: 20040408
  Receipt Date: 20040324
  Transmission Date: 20050107
  Serious: Yes (Hospitalization, Other)
  Sender: FDA-Public Use
  Company Number: 231045

PATIENT
  Age: 1 Day
  Sex: Male

DRUGS (21)
  1. NOVORAPID PENFILL 3 ML (NOVORAPID PENFILL 3 ML )(INSULIN ASPART) SOLUT [Suspect]
     Indication: DIABETES MELLITUS INSULIN-DEPENDENT
     Dosage: 10 U, QD, INTRAUTERINE; 16 INTRAUTERINE
     Route: 015
     Dates: start: 20021225
  2. NOVORAPID PENFILL 3 ML (NOVORAPID PENFILL 3 ML )(INSULIN ASPART) SOLUT [Suspect]
     Indication: DIABETES MELLITUS INSULIN-DEPENDENT
     Dosage: 10 U, QD, INTRAUTERINE; 16 INTRAUTERINE
     Route: 015
     Dates: start: 20030729
  3. PROTAPHANE PENFILL HM (GE) 3 ML (INSULIN HUMAN) SUSPENSION FOR INJECTI [Concomitant]
  4. EUPHYLLIN (AMINOPHYLLINE) [Concomitant]
  5. CANEPHRON - SLOW RELEASE (SOLIDAGINIS EXTRACT, ORTHOSIPHON LEAF EXTRAC [Concomitant]
  6. SODIUM CHLORIDE 0.9% [Concomitant]
  7. ACTOVEGIN 10%-NACL (BLOOD, CALF, DEPROT., LMW PORTION) [Concomitant]
  8. TRENTAL - SLOW RELEASE (PENTOXIFYLLINE) [Concomitant]
  9. RIBOXIN (ROXITHROMYCIN) [Concomitant]
  10. FOLIC ACID [Concomitant]
  11. MATERNA 1.60 (DOCUSATE SODIUM, MINERALS NOS, VITAMINS NOS) [Concomitant]
  12. TOCOPHEROL ACETATE (TOCOPHEROL ACETATE) [Concomitant]
  13. PHENOBARBITAL TAB [Concomitant]
  14. THIOPENTAL (THIOPENTAL) [Concomitant]
  15. SUXAMETHONIUM IODIDE (SUXAMETHONIUM IODIDE) [Concomitant]
  16. PHENTONYL [Concomitant]
  17. MORPHINE [Concomitant]
  18. ANALGIN (METAMIZOLE SODIUM) [Concomitant]
  19. DIMEDROLUM (DIPHENHYDRAMINE HYDROCHLORIDE) [Concomitant]
  20. METROGYL (METRONIDAZOLE) [Concomitant]
  21. ZINACEF [Concomitant]

REACTIONS (4)
  - CAESAREAN SECTION [None]
  - FOETAL DISTRESS SYNDROME [None]
  - HYPOGLYCAEMIA NEONATAL [None]
  - MATERNAL DRUGS AFFECTING FOETUS [None]
